FAERS Safety Report 13577122 (Version 1)
Quarter: 2017Q2

REPORT INFORMATION
  Report Type: Spontaneous
  Country: IE (occurrence: IE)
  Receive Date: 20170524
  Receipt Date: 20170524
  Transmission Date: 20170830
  Serious: Yes (Disabling, Congenital Anomaly)
  Sender: FDA-Public Use
  Company Number: IE-ABBVIE-17P-229-1985559-00

PATIENT
  Sex: Female

DRUGS (1)
  1. EPILIM [Suspect]
     Active Substance: VALPROATE SODIUM
     Indication: MATERNAL EXPOSURE TIMING UNSPECIFIED
     Route: 064

REACTIONS (13)
  - Coordination abnormal [Unknown]
  - Foetal anticonvulsant syndrome [Unknown]
  - Spinal deformity [Unknown]
  - Dysgraphia [Unknown]
  - Anxiety [Unknown]
  - Developmental delay [Unknown]
  - Disturbance in attention [Unknown]
  - Dyslexia [Unknown]
  - Foetal exposure during pregnancy [Unknown]
  - Speech disorder [Unknown]
  - Language disorder [Unknown]
  - Social (pragmatic) communication disorder [Unknown]
  - Dyscalculia [Unknown]
